FAERS Safety Report 6667941-6 (Version None)
Quarter: 2010Q2

REPORT INFORMATION
  Report Type: 
  Country: None (occurrence: None)
  Receive Date: 20100401
  Receipt Date: 20091223
  Transmission Date: 20101027
  Serious: Yes (Congenital Anomaly, Other)
  Sender: FDA-Public Use
  Company Number: AUR-APL-2010-00742

PATIENT
  Sex: Female
  Weight: 3.06 kg

DRUGS (5)
  1. ZIDOVUDINE [Suspect]
     Indication: HIV INFECTION
     Dosage: TRANSPLACENT
     Route: 064
     Dates: start: 20060120
  2. NELFINAVIR MESYLATE [Suspect]
     Indication: HIV INFECTION
     Dosage: TRANSPLACENT
     Route: 064
     Dates: start: 20060120
  3. EFAVIRENZ [Suspect]
     Indication: HIV INFECTION
     Dosage: TRANSPLACENTAL
     Route: 064
     Dates: start: 20051030
  4. LAMIVUDINE [Suspect]
     Indication: HIV INFECTION
     Dosage: TRANSPLANCENTAL
     Route: 064
     Dates: start: 20051030
  5. STAVUDINE [Concomitant]
     Indication: HIV INFECTION
     Dosage: TRANSPLACENTAL
     Route: 064
     Dates: start: 20051030

REACTIONS (1)
  - DRUG EXPOSURE DURING PREGNANCY [None]
